FAERS Safety Report 7057889-X (Version None)
Quarter: 2010Q4

REPORT INFORMATION
  Report Type: 
  Country: None (occurrence: None)
  Receive Date: 20101022
  Receipt Date: 20101004
  Transmission Date: 20110411
  Serious: Yes (Hospitalization, Other)
  Sender: FDA-Public Use
  Company Number: US-BAYER-201030732NA

PATIENT
  Age: 25 Year
  Sex: Female
  Weight: 62 kg

DRUGS (17)
  1. OCELLA [Suspect]
     Indication: ORAL CONTRACEPTION
     Route: 048
     Dates: start: 20000101, end: 20080101
  2. YASMIN [Suspect]
     Indication: ORAL CONTRACEPTION
     Route: 048
     Dates: start: 20000101, end: 20080101
  3. YAZ [Suspect]
     Indication: ORAL CONTRACEPTION
     Route: 048
     Dates: start: 20000101, end: 20080101
  4. VALTREX [Concomitant]
     Indication: HERPES VIRUS INFECTION
     Dosage: 1 TAB FOR 10 DAYS
     Route: 048
     Dates: start: 20050916
  5. VALTREX [Concomitant]
     Dosage: 1 TAB FOR 10 DAYS
     Route: 048
     Dates: start: 20060313
  6. VALTREX [Concomitant]
     Dates: start: 20060101
  7. VALTREX [Concomitant]
     Dosage: 1 TAB FOR 10 DAYS
     Route: 048
     Dates: start: 20070622
  8. VALTREX [Concomitant]
     Dosage: 1 TAB FOR 10 DAYS
     Route: 048
     Dates: start: 20051204
  9. BROMETANE SYRUP [Concomitant]
     Dosage: 2 TEASPOON EVERY 4 HRS.
     Route: 048
     Dates: start: 20060309
  10. AMOXICILLIN [Concomitant]
     Route: 048
     Dates: start: 20070731
  11. CERON DM SYRUP [Concomitant]
     Dosage: 2 TEASPOONS
     Route: 048
     Dates: start: 20070925
  12. CEFDINIR [Concomitant]
     Route: 048
     Dates: start: 20070925
  13. HYDROCORTISONE CREAM [Concomitant]
     Route: 061
     Dates: start: 20071212
  14. FLUCONAZOLE [Concomitant]
     Route: 048
     Dates: start: 20071212
  15. ZAZOLE [Concomitant]
     Route: 067
     Dates: start: 20071219
  16. PROMETHAZINE DM SYRUP [Concomitant]
     Dosage: 2 TEASPOONS
     Route: 048
     Dates: start: 20080107
  17. AZITHROMYCIN [Concomitant]
     Route: 048
     Dates: start: 20080107

REACTIONS (8)
  - ABDOMINAL PAIN [None]
  - AKINESIA [None]
  - CHOLECYSTITIS [None]
  - DIARRHOEA [None]
  - GALLBLADDER CHOLESTEROLOSIS [None]
  - MIGRAINE [None]
  - NAUSEA [None]
  - PINEAL GLAND CYST [None]
